FAERS Safety Report 9387029 (Version 1)
Quarter: 2013Q3

REPORT INFORMATION
  Report Type: Spontaneous
  Country: ES (occurrence: ES)
  Receive Date: 20130708
  Receipt Date: 20130708
  Transmission Date: 20140515
  Serious: Yes (Hospitalization, Other)
  Sender: FDA-Public Use
  Company Number: ES-MPIJNJ-2013-05132

PATIENT
  Sex: 0

DRUGS (5)
  1. VELCADE [Suspect]
     Indication: PLASMA CELL MYELOMA
     Dosage: 1.3 MG/M2, UNK
     Route: 065
     Dates: start: 20130104, end: 20130611
  2. DEXAMETHASONE [Concomitant]
     Indication: PLASMA CELL MYELOMA
     Dosage: 40 MG, UNK
     Dates: start: 20130104, end: 201306
  3. ALLOPURINOL [Concomitant]
  4. ACICLOVIR [Concomitant]
     Indication: PROPHYLAXIS
  5. SEPTRIN [Concomitant]

REACTIONS (1)
  - Necrotising fasciitis [Recovering/Resolving]
